FAERS Safety Report 8033723-6 (Version None)
Quarter: 2012Q1

REPORT INFORMATION
  Report Type: 
  Country: None (occurrence: None)
  Receive Date: 20120110
  Receipt Date: 20120105
  Transmission Date: 20120608
  Serious: Yes (Death)
  Sender: FDA-Public Use
  Company Number: US-GLAXOSMITHKLINE-A0960230A

PATIENT
  Age: 77 Year
  Sex: Male

DRUGS (3)
  1. ALZHEIMER'S MEDICATION [Concomitant]
  2. AVANDIA [Suspect]
     Indication: TYPE 2 DIABETES MELLITUS
     Route: 048
     Dates: start: 20080101, end: 20090117
  3. ANTI-PARKINSON'S DISEASE MEDICATION [Concomitant]

REACTIONS (4)
  - WEIGHT DECREASED [None]
  - APHAGIA [None]
  - CARDIAC FAILURE [None]
  - CEREBROVASCULAR ACCIDENT [None]
